FAERS Safety Report 18809025 (Version 2)
Quarter: 2021Q1

REPORT INFORMATION
  Report Type: Spontaneous
  Country: DE (occurrence: DE)
  Receive Date: 20210129
  Receipt Date: 20210205
  Transmission Date: 20210419
  Serious: Yes (Other)
  Sender: FDA-Public Use
  Company Number: DE-PFIZER INC-2021059150

PATIENT
  Sex: Male
  Weight: 82 kg

DRUGS (5)
  1. NIZOFENONE FUMARATE. [Suspect]
     Active Substance: NIZOFENONE FUMARATE
     Dosage: 1 UNK, 1X/DAY
     Dates: start: 2013
  2. XELEVIA [Suspect]
     Active Substance: SITAGLIPTIN PHOSPHATE
     Dosage: 2 DF, 1X/DAY (2 TABLETS DAILY)
     Route: 048
     Dates: start: 2011
  3. ASPIRINE [Concomitant]
     Active Substance: ASPIRIN
     Dosage: UNK
     Dates: start: 2001
  4. ATORVASTATIN CALCIUM. [Suspect]
     Active Substance: ATORVASTATIN CALCIUM
     Dosage: 1 UNK, 1X/DAY
     Dates: start: 2006
  5. RAXONE [Suspect]
     Active Substance: IDEBENONE
     Dosage: 1 UNK, 1X/DAY
     Dates: start: 2013

REACTIONS (4)
  - Functional gastrointestinal disorder [Not Recovered/Not Resolved]
  - Fatigue [Not Recovered/Not Resolved]
  - Dementia [Not Recovered/Not Resolved]
  - Visual impairment [Not Recovered/Not Resolved]

NARRATIVE: CASE EVENT DATE: 201101
